FAERS Safety Report 6788551-6 (Version None)
Quarter: 2010Q2

REPORT INFORMATION
  Report Type: 
  Country: None (occurrence: None)
  Receive Date: 20100623
  Receipt Date: 20080325
  Transmission Date: 20101027
  Serious: No
  Sender: FDA-Public Use
  Company Number: US-PFIZER INC-2008027847

PATIENT
  Sex: Female

DRUGS (4)
  1. COLESTID [Suspect]
     Indication: COELIAC DISEASE
     Route: 048
     Dates: start: 20070401, end: 20080301
  2. COLESTID [Suspect]
     Indication: COELIAC DISEASE
     Dates: start: 20080313
  3. LEVOTHYROXINE SODIUM [Concomitant]
     Indication: HYPOTHYROIDISM
  4. MICROZIDE [Concomitant]

REACTIONS (1)
  - DIARRHOEA [None]
